FAERS Safety Report 25680646 (Version 1)
Quarter: 2025Q3

REPORT INFORMATION
  Report Type: Spontaneous
  Country: EU (occurrence: EU)
  Receive Date: 20250814
  Receipt Date: 20250814
  Transmission Date: 20251021
  Serious: Yes (Other)
  Sender: MYLAN
  Company Number: EU-MYLANLABS-2025M1067710

PATIENT
  Sex: Male

DRUGS (8)
  1. PRASUGREL [Interacting]
     Active Substance: PRASUGREL
     Indication: Antiplatelet therapy
  2. PRASUGREL [Interacting]
     Active Substance: PRASUGREL
     Route: 065
  3. PRASUGREL [Interacting]
     Active Substance: PRASUGREL
     Route: 065
  4. PRASUGREL [Interacting]
     Active Substance: PRASUGREL
  5. PRAVASTATIN [Interacting]
     Active Substance: PRAVASTATIN
     Indication: Product used for unknown indication
  6. PRAVASTATIN [Interacting]
     Active Substance: PRAVASTATIN
     Route: 065
  7. PRAVASTATIN [Interacting]
     Active Substance: PRAVASTATIN
     Route: 065
  8. PRAVASTATIN [Interacting]
     Active Substance: PRAVASTATIN

REACTIONS (2)
  - Rhabdomyolysis [Unknown]
  - Drug interaction [Unknown]
